FAERS Safety Report 15566811 (Version 2)
Quarter: 2019Q1

REPORT INFORMATION
  Report Type: Spontaneous
  Country: US (occurrence: US)
  Receive Date: 20181030
  Receipt Date: 20190312
  Transmission Date: 20190417
  Serious: No
  Sender: FDA-Public Use
  Company Number: US-PFIZER INC-2018443312

PATIENT
  Age: 50 Year
  Sex: Male

DRUGS (13)
  1. ZANTAC [Concomitant]
     Active Substance: RANITIDINE HYDROCHLORIDE
     Dosage: 150 MG, DAILY
  2. TESSALON [Concomitant]
     Active Substance: BENZONATATE
     Dosage: 200 MG, 3X/DAY
  3. ZOFRAN [Concomitant]
     Active Substance: ONDANSETRON HYDROCHLORIDE
     Dosage: 8 MG, DAILY
  4. BIOTENE [FLUORINE;XYLITOL] [Concomitant]
     Active Substance: SODIUM FLUORIDE\SODIUM MONOFLUOROPHOSPHATE
     Dosage: UNK UNK, AS NEEDED
  5. ATIVAN [Concomitant]
     Active Substance: LORAZEPAM
     Dosage: 1 MG, AS NEEDED [QID PRN]
  6. NIVOLUMAB [Concomitant]
     Active Substance: NIVOLUMAB
     Dosage: UNK
     Route: 048
  7. RITALIN [Concomitant]
     Active Substance: METHYLPHENIDATE HYDROCHLORIDE
     Dosage: 10 MG, 2X/DAY
  8. CRIZOTINIB [Suspect]
     Active Substance: CRIZOTINIB
     Indication: LUNG NEOPLASM MALIGNANT
     Dosage: UNK
     Dates: start: 20170103, end: 20170125
  9. AMBIEN [Concomitant]
     Active Substance: ZOLPIDEM TARTRATE
     Dosage: 5 MG, 1X/DAY (EVERY BEDTIME)
  10. OXYCODONE [Concomitant]
     Active Substance: OXYCODONE
     Dosage: UNK UNK, AS NEEDED [5-10MG Q4 HRS PRN]
  11. MS CONTIN [Concomitant]
     Active Substance: MORPHINE SULFATE
     Dosage: 30 MG, 2X/DAY
  12. COMPAZINE [PROCHLORPERAZINE EDISYLATE] [Concomitant]
     Active Substance: PROCHLORPERAZINE EDISYLATE
     Dosage: 10 MG, AS NEEDED
  13. FLEXERIL [CEFIXIME] [Concomitant]
     Active Substance: CEFIXIME
     Dosage: 10 MG, AS NEEDED [TID PRN]

REACTIONS (4)
  - Dizziness [Unknown]
  - Visual impairment [Unknown]
  - Dysgeusia [Unknown]
  - Drug hypersensitivity [Unknown]
